FAERS Safety Report 18599597 (Version 6)
Quarter: 2021Q2

REPORT INFORMATION
  Report Type: Spontaneous
  Country: JP (occurrence: JP)
  Receive Date: 20201210
  Receipt Date: 20210521
  Transmission Date: 20210717
  Serious: Yes (Death, Life-Threatening, Hospitalization, Other)
  Sender: FDA-Public Use
  Company Number: JP-009507513-2012JPN000309J

PATIENT
  Age: 80 Year
  Sex: Female
  Weight: 43 kg

DRUGS (2)
  1. KEYTRUDA [Suspect]
     Active Substance: PEMBROLIZUMAB
     Indication: LUNG ADENOCARCINOMA STAGE III
     Dosage: 200 MILLIGRAM, Q3W
     Route: 041
     Dates: start: 20191017, end: 202002
  2. VONOPRAZAN FUMARATE [Concomitant]
     Active Substance: VONOPRAZAN FUMARATE
     Dosage: 20 MILLIGRAM, QD
     Route: 048

REACTIONS (5)
  - Colitis ischaemic [Recovering/Resolving]
  - Bacteraemia [Fatal]
  - Acute hepatic failure [Recovered/Resolved with Sequelae]
  - Immune-mediated cholangitis [Recovering/Resolving]
  - Ventricular fibrillation [Fatal]

NARRATIVE: CASE EVENT DATE: 20200324
